FAERS Safety Report 4707797-1 (Version None)
Quarter: 2005Q2

REPORT INFORMATION
  Report Type: 
  Country: None (occurrence: None)
  Receive Date: 20050629
  Receipt Date: 20050304
  Transmission Date: 20051028
  Serious: No
  Sender: FDA-Public Use
  Company Number: 05P-163-0292873-00

PATIENT
  Age: 52 Year
  Sex: Female
  Weight: 76.2043 kg

DRUGS (11)
  1. HUMIRA [Suspect]
     Indication: RHEUMATOID ARTHRITIS
     Dosage: 40 MG, 1 IN 2 WK, SUBCUTANEOUS
     Route: 058
     Dates: start: 20050201
  2. METHOTREXATE [Concomitant]
  3. CELECOXIB [Concomitant]
  4. AZULFADINE [Concomitant]
  5. GABAPENTIN [Concomitant]
  6. FOLIC ACID [Concomitant]
  7. CLONAZEPAM [Concomitant]
  8. CYCLOBENZAPRINE HYDROCHLORIDE [Concomitant]
  9. DARVOCET [Concomitant]
  10. OXYCOCET [Concomitant]
  11. ACITHEX [Concomitant]

REACTIONS (1)
  - VIRAL UPPER RESPIRATORY TRACT INFECTION [None]
